FAERS Safety Report 16824027 (Version 1)
Quarter: 2019Q3

REPORT INFORMATION
  Report Type: Spontaneous
  Country: US (occurrence: US)
  Receive Date: 20190918
  Receipt Date: 20190918
  Transmission Date: 20191005
  Serious: No
  Sender: FDA-Public Use
  Company Number: US-LEADING PHARMA, LLC-2074619

PATIENT
  Age: 68 Year
  Sex: Female

DRUGS (2)
  1. IPRATROPIUM BROMIDE AND ALBUTEROL SULFATE [Concomitant]
     Active Substance: ALBUTEROL SULFATE\IPRATROPIUM BROMIDE
  2. LORAZEPAM. [Suspect]
     Active Substance: LORAZEPAM

REACTIONS (7)
  - Middle insomnia [Unknown]
  - Hot flush [Unknown]
  - Quality of life decreased [Unknown]
  - Suicidal ideation [Unknown]
  - Restless legs syndrome [Unknown]
  - Agitation [Unknown]
  - Dyspnoea [Unknown]
